FAERS Safety Report 10146158 (Version 1)
Quarter: 2014Q2

REPORT INFORMATION
  Report Type: Spontaneous
  Country: None (occurrence: US)
  Receive Date: 20140501
  Receipt Date: 20140501
  Transmission Date: 20141212
  Serious: No
  Sender: FDA-Public Use
  Company Number: US-TARO-2013P1004745

PATIENT
  Sex: Female

DRUGS (2)
  1. AMIODARONE HCL TABLET 200 MG [Suspect]
  2. LASIX [Suspect]

REACTIONS (2)
  - Drug interaction [Unknown]
  - Malaise [Unknown]
